FAERS Safety Report 12010272 (Version 1)
Quarter: 2016Q1

REPORT INFORMATION
  Report Type: Spontaneous
  Country: None (occurrence: None)
  Receive Date: 20160204
  Receipt Date: 20160204
  Transmission Date: 20160526
  Serious: Yes (Hospitalization)
  Sender: FDA-Public Use
  Company Number: None

PATIENT
  Sex: Male

DRUGS (1)
  1. ADENOSINE WEST COAST NUCLEAR PHARMACY [Suspect]
     Active Substance: ADENOSINE
     Indication: CARDIAC DISORDER
     Dosage: NOT SURE, ONNCE DAILY, INTO A VEIN

REACTIONS (3)
  - Anxiety [None]
  - Chills [None]
  - Feeling cold [None]

NARRATIVE: CASE EVENT DATE: 20150516
